FAERS Safety Report 16005000 (Version 1)
Quarter: 2019Q1

REPORT INFORMATION
  Report Type: Spontaneous
  Country: US (occurrence: US)
  Receive Date: 20190226
  Receipt Date: 20190226
  Transmission Date: 20190418
  Serious: Yes (Death)
  Sender: FDA-Public Use
  Company Number: PHEH2019US008452

PATIENT
  Age: 22 Year
  Sex: Male

DRUGS (1)
  1. KYMRIAH [Suspect]
     Active Substance: TISAGENLECLEUCEL
     Indication: ACUTE LYMPHOCYTIC LEUKAEMIA
     Dosage: 41 ML, ONCE/SINGLE
     Route: 042
     Dates: start: 20190118, end: 20190118

REACTIONS (1)
  - Death [Fatal]

NARRATIVE: CASE EVENT DATE: 20190215
